FAERS Safety Report 16290039 (Version 1)
Quarter: 2019Q2

REPORT INFORMATION
  Report Type: Spontaneous
  Country: JP (occurrence: JP)
  Receive Date: 20190509
  Receipt Date: 20190509
  Transmission Date: 20190711
  Serious: Yes (Other)
  Sender: FDA-Public Use
  Company Number: JP-KYOWAKIRIN-2019AKK003312

PATIENT

DRUGS (1)
  1. POTELIGEO [Suspect]
     Active Substance: MOGAMULIZUMAB-KPKC
     Indication: ADULT T-CELL LYMPHOMA/LEUKAEMIA RECURRENT
     Dosage: 1 MG/KG, 1X/WEEK
     Route: 041

REACTIONS (4)
  - Cytomegalovirus infection [Unknown]
  - Therapy non-responder [Unknown]
  - Drug eruption [Unknown]
  - Interstitial lung disease [Unknown]
